FAERS Safety Report 10075032 (Version 2)
Quarter: 2014Q2

REPORT INFORMATION
  Report Type: Spontaneous
  Country: JP (occurrence: JP)
  Receive Date: 20140414
  Receipt Date: 20140415
  Transmission Date: 20141212
  Serious: No
  Sender: FDA-Public Use
  Company Number: JP-UCBSA-117957

PATIENT
  Age: 38 Year
  Sex: Male

DRUGS (6)
  1. E KEPPRA [Suspect]
     Indication: EPILEPSY
     Dosage: STRENGTH: 250 MG
     Route: 048
  2. TEGRETOL [Concomitant]
     Route: 048
  3. EXCEGRAN [Concomitant]
     Route: 048
  4. CERCINE [Concomitant]
     Route: 048
  5. BEZAFIBRATE [Concomitant]
     Route: 048
  6. RISPERDAL [Concomitant]
     Route: 048

REACTIONS (1)
  - Ear haemorrhage [Unknown]
